FAERS Safety Report 7102869-9 (Version None)
Quarter: 2010Q4

REPORT INFORMATION
  Report Type: 
  Country: None (occurrence: None)
  Receive Date: 20101115
  Receipt Date: 20101102
  Transmission Date: 20110411
  Serious: Yes (Hospitalization, Disabling, Other)
  Sender: FDA-Public Use
  Company Number: US-ELI_LILLY_AND_COMPANY-US201009000748

PATIENT
  Age: 83 Year
  Sex: Male

DRUGS (2)
  1. FORTEO [Suspect]
     Indication: OSTEOPOROSIS
  2. OTHER LIPID MODIFYING AGENTS [Concomitant]

REACTIONS (3)
  - ASTHENIA [None]
  - EMBOLIC STROKE [None]
  - SPEECH DISORDER [None]
